FAERS Safety Report 7075060-2 (Version None)
Quarter: 2010Q4

REPORT INFORMATION
  Report Type: 
  Country: None (occurrence: None)
  Receive Date: 20101029
  Receipt Date: 20100413
  Transmission Date: 20110411
  Serious: No
  Sender: FDA-Public Use
  Company Number: US-WYE-H14629210

PATIENT
  Age: 8 Year
  Sex: Male

DRUGS (1)
  1. ALAVERT [Suspect]
     Dosage: TOOK 2 TABLETS WITHIN 12 HOURS
     Route: 048
     Dates: start: 20100401, end: 20100401

REACTIONS (1)
  - OVERDOSE [None]
